FAERS Safety Report 6774625-2 (Version None)
Quarter: 2010Q2

REPORT INFORMATION
  Report Type: 
  Country: None (occurrence: None)
  Receive Date: 20100617
  Receipt Date: 20100608
  Transmission Date: 20101027
  Serious: Yes (Other)
  Sender: FDA-Public Use
  Company Number: JP-ROCHE-694709

PATIENT
  Sex: Female

DRUGS (18)
  1. TOCILIZUMAB [Suspect]
     Indication: RHEUMATOID ARTHRITIS
     Route: 041
     Dates: start: 20090622, end: 20090622
  2. TOCILIZUMAB [Suspect]
     Route: 041
     Dates: start: 20090724, end: 20090724
  3. TOCILIZUMAB [Suspect]
     Route: 041
     Dates: start: 20090821, end: 20090821
  4. TOCILIZUMAB [Suspect]
     Route: 041
     Dates: start: 20090918, end: 20090918
  5. TOCILIZUMAB [Suspect]
     Route: 041
     Dates: start: 20091016, end: 20091016
  6. TOCILIZUMAB [Suspect]
     Route: 041
     Dates: start: 20091113, end: 20091113
  7. TOCILIZUMAB [Suspect]
     Route: 041
     Dates: start: 20091211, end: 20091211
  8. TOCILIZUMAB [Suspect]
     Route: 041
     Dates: start: 20100108, end: 20100108
  9. TOCILIZUMAB [Suspect]
     Route: 041
     Dates: start: 20100205, end: 20100205
  10. TOCILIZUMAB [Suspect]
     Route: 041
     Dates: start: 20100305
  11. ISCOTIN [Concomitant]
     Dosage: FORM: PERORAL AGENT
     Route: 048
     Dates: start: 20080711
  12. MUCOSTA [Concomitant]
     Dosage: FORM: PERORAL AGENT
     Route: 048
  13. PYDOXAL [Concomitant]
     Route: 048
  14. NU-LOTAN [Concomitant]
     Route: 048
  15. ASPIRIN [Concomitant]
     Dosage: FORM:ENTERIC COATING DRUG
     Route: 048
  16. TAKEPRON [Concomitant]
     Route: 048
  17. CRESTOR [Concomitant]
     Route: 048
  18. SOLETON [Concomitant]
     Route: 048

REACTIONS (4)
  - ALANINE AMINOTRANSFERASE INCREASED [None]
  - ASPARTATE AMINOTRANSFERASE INCREASED [None]
  - BLOOD TRIGLYCERIDES INCREASED [None]
  - HYPERGLYCAEMIA [None]
